FAERS Safety Report 7560970-X (Version None)
Quarter: 2011Q2

REPORT INFORMATION
  Report Type: 
  Country: None (occurrence: None)
  Receive Date: 20110621
  Receipt Date: 20110620
  Transmission Date: 20111010
  Serious: Yes (Other)
  Sender: FDA-Public Use
  Company Number: DE-GILEAD-2011-0040884

PATIENT
  Age: 76 Year
  Sex: Male

DRUGS (5)
  1. VIREAD [Suspect]
     Indication: HIV INFECTION
  2. ABACAVIR SULFATE AND LAMIVUDINE [Concomitant]
  3. BARACLUDE [Concomitant]
  4. NORVIR [Concomitant]
  5. PREZISTA [Concomitant]

REACTIONS (1)
  - MYOCARDIAL INFARCTION [None]
